APPROVED DRUG PRODUCT: TRIMIPRAMINE MALEATE
Active Ingredient: TRIMIPRAMINE MALEATE
Strength: EQ 100MG BASE
Dosage Form/Route: CAPSULE;ORAL
Application: A071285 | Product #001
Applicant: USL PHARMA INC
Approved: Dec 8, 1987 | RLD: No | RS: No | Type: DISCN